FAERS Safety Report 19589059 (Version 3)
Quarter: 2021Q3

REPORT INFORMATION
  Report Type: Spontaneous
  Country: JP (occurrence: JP)
  Receive Date: 20210721
  Receipt Date: 20210921
  Transmission Date: 20211014
  Serious: Yes (Death, Hospitalization, Other)
  Sender: FDA-Public Use
  Company Number: JP-BRISTOL-MYERS SQUIBB COMPANY-BMS-2021-070752

PATIENT
  Age: 87 Year
  Sex: Male
  Weight: 43.5 kg

DRUGS (8)
  1. OXYCODONE NX [Concomitant]
     Indication: GASTRIC CANCER
     Dosage: 10 MILLIGRAM, Q12H, SLOW RELEASE TABLET
     Route: 048
     Dates: start: 20210416, end: 20210626
  2. OXINORM [OXYCODONE HYDROCHLORIDE] [Concomitant]
     Active Substance: OXYCODONE HYDROCHLORIDE
     Indication: GASTRIC CANCER
     Dosage: 2.5 MILLIGRAM, QD
     Route: 048
     Dates: start: 20210416, end: 20210626
  3. SYMPROIC [Concomitant]
     Active Substance: NALDEMEDINE
     Indication: PROPHYLAXIS
     Dosage: 0.2 MILLIGRAM, QD
     Route: 048
     Dates: start: 20210422, end: 20210626
  4. ZYPREXA [Concomitant]
     Active Substance: OLANZAPINE
     Indication: PROPHYLAXIS
     Dosage: 5 MILLIGRAM, QD
     Route: 048
     Dates: start: 20210506, end: 20210622
  5. MAGNESIUM OXIDE. [Concomitant]
     Active Substance: MAGNESIUM OXIDE
     Indication: PROPHYLAXIS
     Dosage: 1000 MILLIGRAM, Q8H
     Route: 048
     Dates: start: 20210422, end: 20210622
  6. OPDIVO [Suspect]
     Active Substance: NIVOLUMAB
     Indication: GASTRIC CANCER
     Dosage: 240 MG, Q2W
     Route: 041
     Dates: start: 20210611, end: 20210611
  7. QUETIAPINE. [Concomitant]
     Active Substance: QUETIAPINE
     Indication: PRODUCT USED FOR UNKNOWN INDICATION
     Dosage: 25 MILLIGRAM, QD
     Route: 048
  8. CALONAL [Concomitant]
     Active Substance: ACETAMINOPHEN
     Indication: GASTRIC CANCER
     Dosage: 1000 MILLIGRAM, Q8H
     Route: 048
     Dates: start: 20210326, end: 20210622

REACTIONS (3)
  - Malignant neoplasm progression [Fatal]
  - Hypoglycaemia [Unknown]
  - Autoimmune hepatitis [Fatal]

NARRATIVE: CASE EVENT DATE: 2021
